FAERS Safety Report 6732442-3 (Version None)
Quarter: 2010Q2

REPORT INFORMATION
  Report Type: 
  Country: None (occurrence: None)
  Receive Date: 20100519
  Receipt Date: 20100513
  Transmission Date: 20101027
  Serious: Yes (Death)
  Sender: FDA-Public Use
  Company Number: JP-ROCHE-703634

PATIENT
  Sex: Male

DRUGS (11)
  1. TOCILIZUMAB [Suspect]
     Indication: RHEUMATOID ARTHRITIS
     Route: 041
     Dates: start: 20090126, end: 20090126
  2. TOCILIZUMAB [Suspect]
     Route: 041
     Dates: start: 20090223, end: 20090223
  3. TOCILIZUMAB [Suspect]
     Route: 041
     Dates: start: 20090323, end: 20090323
  4. TOCILIZUMAB [Suspect]
     Route: 041
     Dates: start: 20090420, end: 20090420
  5. TOCILIZUMAB [Suspect]
     Route: 041
     Dates: start: 20090518, end: 20090518
  6. TOCILIZUMAB [Suspect]
     Route: 041
     Dates: start: 20090615, end: 20090615
  7. TOCILIZUMAB [Suspect]
     Route: 041
     Dates: start: 20090713
  8. AZULFIDINE [Concomitant]
     Route: 048
     Dates: start: 20000501
  9. METALCAPTASE [Concomitant]
     Dosage: DRUG: METALCAPTASE(D-PENICILLAMINE)
     Route: 048
     Dates: start: 20061208
  10. PREDONINE [Concomitant]
     Route: 048
  11. LOXONIN [Concomitant]
     Dosage: FORM: PERORAL AGENT
     Route: 048
     Dates: start: 20061208

REACTIONS (1)
  - SMALL CELL LUNG CANCER STAGE UNSPECIFIED [None]
